FAERS Safety Report 6355692-7 (Version None)
Quarter: 2009Q3

REPORT INFORMATION
  Report Type: 
  Country: None (occurrence: None)
  Receive Date: 20090910
  Receipt Date: 20090828
  Transmission Date: 20100115
  Serious: Yes (Congenital Anomaly)
  Sender: FDA-Public Use
  Company Number: 1000003668

PATIENT
  Sex: Male
  Weight: 2.9 kg

DRUGS (4)
  1. LEXAPRO [Suspect]
     Dosage: SEE IMAGE
     Route: 064
     Dates: end: 20080901
  2. LEXAPRO [Suspect]
     Dosage: SEE IMAGE
     Route: 064
     Dates: start: 20080901
  3. LEVONELLE (TABLETS) [Concomitant]
  4. FOLIC ACID TAB [Concomitant]

REACTIONS (4)
  - APGAR SCORE LOW [None]
  - CLEFT LIP [None]
  - CLEFT PALATE [None]
  - MATERNAL CONDITION AFFECTING FOETUS [None]
